FAERS Safety Report 8550475-1 (Version None)
Quarter: 2012Q3

REPORT INFORMATION
  Report Type: 
  Country: None (occurrence: None)
  Receive Date: 20120730
  Receipt Date: 20120716
  Transmission Date: 20120928
  Serious: Yes (Other)
  Sender: FDA-Public Use
  Company Number: NZ-ELI_LILLY_AND_COMPANY-NZ201206001029

PATIENT
  Age: 25 Year
  Sex: Male
  Weight: 96.7 kg

DRUGS (4)
  1. CANNABIS [Concomitant]
  2. ZYPREXA RELPREVV [Suspect]
     Indication: SCHIZOPHRENIA, PARANOID TYPE
     Dosage: 300 MG, 2/M
     Route: 030
     Dates: start: 20120419, end: 20120531
  3. ZYPREXA RELPREVV [Suspect]
     Dosage: 300 MG, 2/M
     Route: 030
  4. ALCOHOL [Concomitant]

REACTIONS (10)
  - SEDATION [None]
  - ASTHENIA [None]
  - GAIT DISTURBANCE [None]
  - VISION BLURRED [None]
  - CONFUSIONAL STATE [None]
  - WEIGHT INCREASED [None]
  - ATAXIA [None]
  - DYSARTHRIA [None]
  - INFLUENZA [None]
  - DIZZINESS [None]
